FAERS Safety Report 16372746 (Version 2)
Quarter: 2022Q2

REPORT INFORMATION
  Report Type: Report from Study
  Country: DE (occurrence: DE)
  Receive Date: 20190530
  Receipt Date: 20220505
  Transmission Date: 20220721
  Serious: Yes (Hospitalization, Other)
  Sender: FDA-Public Use
  Company Number: DE-BOEHRINGERINGELHEIM-2019-BI-023640

PATIENT
  Age: 61 Year
  Sex: Female
  Weight: 68 kg

DRUGS (3)
  1. AFATINIB [Suspect]
     Active Substance: AFATINIB
     Indication: Non-small cell lung cancer
     Route: 065
     Dates: start: 20180222, end: 20180727
  2. BEVACIZUMAB [Suspect]
     Active Substance: BEVACIZUMAB
     Indication: Non-small cell lung cancer
     Route: 065
     Dates: start: 20181115, end: 20190415
  3. INNOHEP 0.6 ML [Concomitant]
     Indication: Product used for unknown indication
     Route: 058
     Dates: start: 20190423

REACTIONS (6)
  - Pulmonary embolism [Recovering/Resolving]
  - Limb injury [Not Recovered/Not Resolved]
  - Onychomadesis [Not Recovered/Not Resolved]
  - Rash maculo-papular [Recovering/Resolving]
  - Skin swelling [Recovering/Resolving]
  - Scab [Recovering/Resolving]

NARRATIVE: CASE EVENT DATE: 20180321
